FAERS Safety Report 9447513 (Version 1)
Quarter: 2013Q3

REPORT INFORMATION
  Report Type: Spontaneous
  Country: MX (occurrence: None)
  Receive Date: 20130805
  Receipt Date: 20130805
  Transmission Date: 20140515
  Serious: Yes (Hospitalization)
  Sender: FDA-Public Use
  Company Number: THQ2013A05695

PATIENT
  Sex: Male

DRUGS (1)
  1. COMPETACT [Suspect]
     Dosage: PIOGLITAZONE HYDROCHLORIDE/METFORMIN

REACTIONS (5)
  - Diabetic ketoacidosis [None]
  - Dizziness [None]
  - Hypoaesthesia [None]
  - Anger [None]
  - Sensation of heaviness [None]
